FAERS Safety Report 17427597 (Version 1)
Quarter: 2020Q1

REPORT INFORMATION
  Report Type: Report from Study
  Country: FR (occurrence: FR)
  Receive Date: 20200218
  Receipt Date: 20200218
  Transmission Date: 20200409
  Serious: Yes (Death, Life-Threatening)
  Sender: FDA-Public Use
  Company Number: FR-SA-2020SA041852

PATIENT
  Age: 5 Month
  Sex: Male

DRUGS (6)
  1. ALEMTUZUMAB [Suspect]
     Active Substance: ALEMTUZUMAB
     Indication: FAMILIAL HAEMOPHAGOCYTIC LYMPHOHISTIOCYTOSIS
     Dosage: 3.3 MG, QD
     Route: 042
     Dates: start: 20171018, end: 20171018
  2. ALEMTUZUMAB [Suspect]
     Active Substance: ALEMTUZUMAB
     Dosage: 6.6 MG, QD
     Route: 042
     Dates: start: 20171019, end: 20171020
  3. METHYLPREDNISOLONE. [Suspect]
     Active Substance: METHYLPREDNISOLONE
     Indication: FAMILIAL HAEMOPHAGOCYTIC LYMPHOHISTIOCYTOSIS
     Dosage: 2 MG/KG, QD
     Route: 042
     Dates: start: 20171012, end: 20171120
  4. BACTRIM [Concomitant]
     Active Substance: SULFAMETHOXAZOLE\TRIMETHOPRIM
     Dosage: 35 MG/KG
     Route: 065
     Dates: start: 20171020, end: 20171214
  5. PARACETAMOL [Concomitant]
     Active Substance: ACETAMINOPHEN
     Indication: PREMEDICATION
     Dosage: UNK UNK, PRN
     Route: 065
     Dates: start: 20171012, end: 20180104
  6. CICLOSPORINE [Concomitant]
     Active Substance: CYCLOSPORINE
     Dosage: 150 MG/ML
     Route: 065
     Dates: start: 20171018, end: 20171211

REACTIONS (2)
  - Lung disorder [Not Recovered/Not Resolved]
  - Pulmonary alveolar haemorrhage [Fatal]

NARRATIVE: CASE EVENT DATE: 20171220
